FAERS Safety Report 7952076 (Version 5)
Quarter: 2014Q1

REPORT INFORMATION
  Report Type: Report from Study
  Country: CA (occurrence: CA)
  Receive Date: 20110519
  Receipt Date: 20140220
  Transmission Date: 20141002
  Serious: Yes (Hospitalization, Other)
  Sender: FDA-Public Use
  Company Number: PHHY2011CA39543

PATIENT
  Age: 61 Year
  Sex: Female
  Weight: 70 kg

DRUGS (10)
  1. ACLASTA/ZOLEDRONATE [Suspect]
     Dosage: 5 MG, UNK
     Route: 042
     Dates: start: 20090811
  2. ACLASTA/ZOLEDRONATE [Suspect]
     Dosage: 5 MG, UNK
     Route: 042
     Dates: start: 20101004
  3. ACLASTA/ZOLEDRONATE [Suspect]
     Dosage: 5 MG, UNK
     Route: 042
     Dates: start: 20110921
  4. DIDROCAL [Concomitant]
     Dosage: 400 MG, QD
  5. EVISTA [Concomitant]
     Dosage: 670 MG, QD
  6. HORMONES AND RELATED AGENTS [Concomitant]
  7. FORTEO [Concomitant]
     Dosage: 20 MG, QD
  8. MIACALCIN [Concomitant]
     Dosage: 200 IU,
     Route: 045
  9. VITAMIN D [Concomitant]
     Dosage: 400 MG, BID
     Dates: start: 2001
  10. CALCIUM [Concomitant]
     Dosage: 500 MG, BID
     Dates: start: 2001

REACTIONS (3)
  - Rib fracture [Unknown]
  - Sternal fracture [Recovered/Resolved]
  - Accident [Recovered/Resolved]
